FAERS Safety Report 21516682 (Version 1)
Quarter: 2022Q4

REPORT INFORMATION
  Report Type: Spontaneous
  Country: US (occurrence: None)
  Receive Date: 20221027
  Receipt Date: 20221027
  Transmission Date: 20230112
  Serious: Yes (Death)
  Sender: FDA-Public Use
  Company Number: None

PATIENT
  Age: 73 Year
  Sex: Male
  Weight: 67.09 kg

DRUGS (14)
  1. BRAFTOVI [Suspect]
     Active Substance: ENCORAFENIB
     Indication: Malignant melanoma
     Dosage: FREQUENCY : DAILY;?
     Route: 048
     Dates: end: 20221027
  2. MEKTOVI [Suspect]
     Active Substance: BINIMETINIB
     Indication: Malignant melanoma
     Dosage: FREQUENCY : TWICE A DAY;?
     Route: 048
     Dates: end: 20221027
  3. ALLEGRA ALLERGY [Concomitant]
     Active Substance: FEXOFENADINE HYDROCHLORIDE
  4. COTELLIC [Concomitant]
     Active Substance: COBIMETINIB
  5. FAMOTIDINE [Concomitant]
     Active Substance: FAMOTIDINE
  6. FINASTERIDE [Concomitant]
     Active Substance: FINASTERIDE
  7. KEPPRA [Concomitant]
     Active Substance: LEVETIRACETAM
  8. LOSARTAN [Concomitant]
     Active Substance: LOSARTAN
  9. MU LTIVITAMIND [Concomitant]
  10. STOOL SOFTENER (DOCUSATE) [Concomitant]
     Active Substance: DOCUSATE
  11. VITAMIN D [Concomitant]
     Active Substance: VITAMIN D NOS
  12. XARELTO [Concomitant]
     Active Substance: RIVAROXABAN
  13. ZELBORAF [Concomitant]
     Active Substance: VEMURAFENIB
  14. ZYRTEC [Concomitant]
     Active Substance: CETIRIZINE HYDROCHLORIDE

REACTIONS (1)
  - Death [None]
